FAERS Safety Report 6353677-8 (Version None)
Quarter: 2009Q3

REPORT INFORMATION
  Report Type: 
  Country: None (occurrence: None)
  Receive Date: 20090912
  Receipt Date: 20090622
  Transmission Date: 20100115
  Serious: No
  Sender: FDA-Public Use
  Company Number: US-ABBOTT-08P-163-0469874-00

PATIENT
  Sex: Female
  Weight: 90.8 kg

DRUGS (4)
  1. HUMIRA [Suspect]
     Indication: CROHN'S DISEASE
     Dosage: DISCARDED
     Route: 058
     Dates: start: 20080711
  2. AZATHIOPRINE [Concomitant]
     Indication: CROHN'S DISEASE
     Route: 048
     Dates: start: 20040101
  3. CHOLESTYRAMINE [Concomitant]
     Indication: CROHN'S DISEASE
     Dosage: 1 SCOOP
     Route: 048
     Dates: start: 20040101
  4. PRO-BIOTIC ACIDOPHILUS [Concomitant]
     Indication: CROHN'S DISEASE
     Route: 048
     Dates: start: 20040101

REACTIONS (2)
  - ACCIDENTAL NEEDLE STICK [None]
  - INCORRECT DOSE ADMINISTERED [None]
